FAERS Safety Report 19721062 (Version 1)
Quarter: 2021Q3

REPORT INFORMATION
  Report Type: Report from Study
  Country: BR (occurrence: BR)
  Receive Date: 20210819
  Receipt Date: 20210819
  Transmission Date: 20211014
  Serious: Yes (Other)
  Sender: FDA-Public Use
  Company Number: PHHY2019BR134436

PATIENT
  Sex: Male

DRUGS (3)
  1. COSENTYX [Suspect]
     Active Substance: SECUKINUMAB
     Indication: PSORIATIC ARTHROPATHY
     Dosage: UNK
     Route: 065
     Dates: start: 20190221
  2. COSENTYX [Suspect]
     Active Substance: SECUKINUMAB
     Dosage: 150 MG, QMO
     Route: 065
     Dates: start: 2019
  3. COSENTYX [Suspect]
     Active Substance: SECUKINUMAB
     Dosage: 150 MG, QMO
     Route: 065
     Dates: start: 20210712

REACTIONS (14)
  - Mass [Unknown]
  - Poor quality sleep [Unknown]
  - Pain [Recovering/Resolving]
  - Gait disturbance [Unknown]
  - Burning sensation [Recovering/Resolving]
  - Pigmentation disorder [Unknown]
  - Osteoarthritis [Unknown]
  - Spinal pain [Unknown]
  - Bone pain [Recovering/Resolving]
  - Liver disorder [Recovered/Resolved]
  - Cardiac disorder [Unknown]
  - Dengue fever [Recovered/Resolved]
  - Swelling [Not Recovered/Not Resolved]
  - Depression [Recovering/Resolving]
